FAERS Safety Report 9669643 (Version 1)
Quarter: 2013Q4

REPORT INFORMATION
  Report Type: Spontaneous
  Country: US (occurrence: None)
  Receive Date: 20131104
  Receipt Date: 20131104
  Transmission Date: 20140711
  Serious: Yes (Other)
  Sender: FDA-Public Use
  Company Number: None

PATIENT
  Age: 78 Year
  Sex: Female
  Weight: 83.92 kg

DRUGS (11)
  1. XARELTO [Suspect]
     Indication: ANTICOAGULANT THERAPY
     Dosage: 1 PILL
     Route: 048
     Dates: start: 20130921, end: 20130926
  2. XARELTO [Suspect]
     Indication: HIP FRACTURE
     Dosage: 1 PILL
     Route: 048
     Dates: start: 20130921, end: 20130926
  3. XARELTO [Suspect]
     Indication: POSTOPERATIVE CARE
     Dosage: 1 PILL
     Route: 048
     Dates: start: 20130921, end: 20130926
  4. LISINOPRIL [Concomitant]
  5. METFORMIN HYDROCHLORIDE [Concomitant]
  6. OMEPRAZOLE [Concomitant]
  7. VIIBRYD [Concomitant]
  8. LEVOTHYROXINE [Concomitant]
  9. SIMVASTATIN [Concomitant]
  10. TRAZODONE [Concomitant]
  11. CALCIUM W/VIT D [Concomitant]

REACTIONS (8)
  - Local swelling [None]
  - Rash erythematous [None]
  - Pruritus [None]
  - Burning sensation [None]
  - Pain [None]
  - Discomfort [None]
  - Irritability [None]
  - Contusion [None]
